FAERS Safety Report 8707604 (Version 3)
Quarter: 2013Q4

REPORT INFORMATION
  Report Type: Spontaneous
  Country: US (occurrence: US)
  Receive Date: 20120805
  Receipt Date: 20131101
  Transmission Date: 20140711
  Serious: No
  Sender: FDA-Public Use
  Company Number: US-009507513-1207USA011519

PATIENT
  Age: 73 Year
  Sex: Female

DRUGS (11)
  1. SAPHRIS [Suspect]
     Indication: BIPOLAR DISORDER
     Dosage: 5 MG, QD
     Route: 060
     Dates: start: 2010
  2. LAMICTAL [Concomitant]
  3. LEXAPRO [Concomitant]
  4. CLONAZEPAM [Concomitant]
  5. TRIHEXYPHENIDYL HYDROCHLORIDE [Concomitant]
  6. OXYBUTYNIN [Concomitant]
  7. BENICAR [Concomitant]
  8. OMEPRAZOLE [Concomitant]
  9. SIMVASTATIN [Concomitant]
  10. EXELON (RIVASTIGMINE) [Concomitant]
  11. PRIMIDONE [Concomitant]

REACTIONS (4)
  - Dry mouth [Not Recovered/Not Resolved]
  - Underdose [Unknown]
  - Product solubility abnormal [Not Recovered/Not Resolved]
  - Inappropriate schedule of drug administration [Unknown]
